FAERS Safety Report 21689752 (Version 1)
Quarter: 2022Q4

REPORT INFORMATION
  Report Type: Spontaneous
  Country: CA (occurrence: CA)
  Receive Date: 20221206
  Receipt Date: 20221206
  Transmission Date: 20230113
  Serious: Yes (Hospitalization)
  Sender: FDA-Public Use
  Company Number: CA-SLATE RUN PHARMACEUTICALS-22CA001435

PATIENT

DRUGS (3)
  1. AZITHROMYCIN [Suspect]
     Active Substance: AZITHROMYCIN
     Indication: Lung disorder
     Dosage: UNK
  2. DORNASE ALFA [Suspect]
     Active Substance: DORNASE ALFA
     Indication: Lung disorder
     Dosage: UNK
  3. SODIUM CHLORIDE [Suspect]
     Active Substance: SODIUM CHLORIDE
     Indication: Lung disorder
     Route: 055

REACTIONS (3)
  - Infective pulmonary exacerbation of cystic fibrosis [Recovering/Resolving]
  - Off label use [Unknown]
  - Therapeutic product ineffective for unapproved indication [Recovering/Resolving]
